FAERS Safety Report 25803990 (Version 2)
Quarter: 2025Q4

REPORT INFORMATION
  Report Type: Spontaneous
  Country: US (occurrence: US)
  Receive Date: 20250915
  Receipt Date: 20251009
  Transmission Date: 20260119
  Serious: No
  Sender: TOLMAR
  Company Number: US-Tolmar-TLM-2025-05866

PATIENT

DRUGS (3)
  1. ELIGARD [Suspect]
     Active Substance: LEUPROLIDE ACETATE
     Indication: Prostate cancer
     Dosage: 22.5 MG. DOSE NOT ADMINISTERED?EXPIRATION DATES: SEP-2026; SEP-2026; SEP-2026?SN: 9956674725706?NDC:
     Route: 058
  2. ELIGARD [Suspect]
     Active Substance: LEUPROLIDE ACETATE
     Dosage: REPLACEMENT DOSE GIVEN
     Route: 065
  3. DEVICE [Suspect]
     Active Substance: DEVICE
     Indication: Prostate cancer
     Dosage: EXPIRATION DATES: SEP-2026; SEP-2026; SEP-2026?SN: 9956674725706?NDC: 62935-227-10?GTIN: 00362935227

REACTIONS (3)
  - Intercepted product preparation error [Unknown]
  - Wrong technique in product usage process [Unknown]
  - Device leakage [Unknown]
